FAERS Safety Report 5638428-4 (Version None)
Quarter: 2008Q1

REPORT INFORMATION
  Report Type: 
  Country: None (occurrence: None)
  Receive Date: 20080221
  Receipt Date: 20080221
  Transmission Date: 20080703
  Serious: Yes (Other)
  Sender: FDA-Public Use
  Company Number: None

PATIENT

DRUGS (1)
  1. TIGER BALM ULTRA STRENGTH HAW PAR CORPORATION LTD [Suspect]
     Indication: ANALGESIA
     Dates: start: 20080219, end: 20080219

REACTIONS (5)
  - APPLICATION SITE BURN [None]
  - APPLICATION SITE PAIN [None]
  - APPLICATION SITE VESICLES [None]
  - DERMATITIS CONTACT [None]
  - PHARMACEUTICAL PRODUCT COMPLAINT [None]
